FAERS Safety Report 10260793 (Version 4)
Quarter: 2015Q2

REPORT INFORMATION
  Report Type: Spontaneous
  Country: KR (occurrence: KR)
  Receive Date: 20140626
  Receipt Date: 20150430
  Transmission Date: 20150821
  Serious: Yes (Hospitalization)
  Sender: FDA-Public Use
  Company Number: KR-ALEXION PHARMACEUTICALS INC.-A201402426

PATIENT

DRUGS (11)
  1. SOLIRIS [Suspect]
     Active Substance: ECULIZUMAB
     Dosage: 3 VIALS, 1 TIME/BIWEEKLY
     Route: 042
  2. DUROGESIC [Concomitant]
     Active Substance: FENTANYL
     Indication: PAIN
     Dosage: 25 ?G, UNK
     Route: 065
     Dates: start: 20120718
  3. SOLIRIS [Suspect]
     Active Substance: ECULIZUMAB
     Indication: PAROXYSMAL NOCTURNAL HAEMOGLOBINURIA
     Dosage: UNK
     Route: 042
  4. SOLIRIS [Suspect]
     Active Substance: ECULIZUMAB
     Dosage: 600 MG, QW
     Route: 042
     Dates: start: 20130121, end: 20130212
  5. SOLONDO [Concomitant]
     Active Substance: PREDNISOLONE
     Indication: PRODUCT USED FOR UNKNOWN INDICATION
     Route: 065
  6. SOLIRIS [Suspect]
     Active Substance: ECULIZUMAB
     Dosage: UNK, 1 TIME/BIWEEKLY
     Route: 042
     Dates: start: 20130923
  7. SOLIRIS [Suspect]
     Active Substance: ECULIZUMAB
     Dosage: 900 MG, Q2W
     Route: 042
     Dates: start: 20130225
  8. ZANTAC [Concomitant]
     Active Substance: RANITIDINE HYDROCHLORIDE
     Indication: GASTRIC ULCER
     Dosage: 150 MG, BID
     Route: 048
     Dates: start: 20130216
  9. TRIDOL [Concomitant]
     Indication: PAIN
     Dosage: 50 MG, BID
     Route: 048
     Dates: start: 20130502
  10. RAPISON [Concomitant]
     Indication: PRURITUS
     Dosage: 10 MG, BID
     Route: 048
     Dates: start: 20130913
  11. MACPERAN [Concomitant]
     Indication: ANTIEMETIC SUPPORTIVE CARE
     Dosage: 5 MG, TID
     Route: 048
     Dates: start: 20130308

REACTIONS (7)
  - Oropharyngeal pain [Recovered/Resolved]
  - Pyrexia [Recovered/Resolved]
  - Sputum discoloured [Recovered/Resolved]
  - Abdominal pain upper [Recovered/Resolved]
  - Upper respiratory tract infection [Recovered/Resolved]
  - Ill-defined disorder [Recovered/Resolved]
  - Myalgia [Recovered/Resolved]

NARRATIVE: CASE EVENT DATE: 20140521
